FAERS Safety Report 16502968 (Version 1)
Quarter: 2019Q3

REPORT INFORMATION
  Report Type: Spontaneous
  Country: US (occurrence: US)
  Receive Date: 20190701
  Receipt Date: 20190701
  Transmission Date: 20191004
  Serious: No
  Sender: FDA-Public Use
  Company Number: US-EYEPOINT PHARMACEUTICALS, INC.-US-EYP-19-00017

PATIENT

DRUGS (2)
  1. DEXYCU [Suspect]
     Active Substance: DEXAMETHASONE
     Route: 031
     Dates: start: 20190327, end: 20190327
  2. DEXYCU [Suspect]
     Active Substance: DEXAMETHASONE
     Indication: PRODUCT USED FOR UNKNOWN INDICATION
     Route: 031
     Dates: start: 20190313, end: 20190313

REACTIONS (2)
  - Device dislocation [Unknown]
  - Eye colour change [Unknown]
